FAERS Safety Report 5071751-3 (Version None)
Quarter: 2006Q3

REPORT INFORMATION
  Report Type: 
  Country: None (occurrence: None)
  Receive Date: 20060801
  Receipt Date: 20060724
  Transmission Date: 20061208
  Serious: Yes (Hospitalization, Other)
  Sender: FDA-Public Use
  Company Number: HQWYE154103MAY06

PATIENT
  Age: 55 Year
  Sex: Male
  Weight: 91.71 kg

DRUGS (6)
  1. MYLOTARG [Suspect]
     Indication: ACUTE MYELOID LEUKAEMIA
     Dosage: 9 MG/M^2 1X PER 1 DAY, INTRAVENOUS
     Route: 042
     Dates: start: 20060414, end: 20060414
  2. BENADRYL [Concomitant]
  3. ZOFRAN [Concomitant]
  4. ACYCLOVIR [Concomitant]
  5. AVELOX [Concomitant]
  6. CELLCEPT [Concomitant]

REACTIONS (4)
  - ASCITES [None]
  - HEPATOMEGALY [None]
  - PLEURAL EFFUSION [None]
  - PORTAL VEIN THROMBOSIS [None]
